FAERS Safety Report 10402257 (Version 4)
Quarter: 2018Q1

REPORT INFORMATION
  Report Type: Spontaneous
  Country: US (occurrence: US)
  Receive Date: 20140822
  Receipt Date: 20180320
  Transmission Date: 20180508
  Serious: No
  Sender: FDA-Public Use
  Company Number: US-PFIZER INC-2014233427

PATIENT
  Sex: Female

DRUGS (2)
  1. LYRICA [Suspect]
     Active Substance: PREGABALIN
     Dosage: 75 MG, A DAY (LESS THAN SHE NORMALLY WOULD)
  2. LYRICA [Suspect]
     Active Substance: PREGABALIN
     Dosage: 75 MG, A DAY (LESS THAN SHE NORMALLY WOULD)

REACTIONS (8)
  - Aphonia [Unknown]
  - Hyperhidrosis [Unknown]
  - Impaired driving ability [Unknown]
  - Sleep disorder [Unknown]
  - Withdrawal syndrome [Unknown]
  - Feeling abnormal [Unknown]
  - Intentional product misuse [Unknown]
  - Loss of personal independence in daily activities [Unknown]
